FAERS Safety Report 5848638-9 (Version None)
Quarter: 2008Q3

REPORT INFORMATION
  Report Type: 
  Country: None (occurrence: None)
  Receive Date: 20080818
  Receipt Date: 20080808
  Transmission Date: 20090109
  Serious: Yes (Other)
  Sender: FDA-Public Use
  Company Number: GB-ABBOTT-08P-167-0467379-00

PATIENT
  Sex: Female
  Weight: 106.1 kg

DRUGS (9)
  1. HUMIRA [Suspect]
     Indication: CROHN'S DISEASE
     Dosage: LOADING
     Route: 058
     Dates: start: 20080501
  2. HUMIRA [Suspect]
     Route: 058
     Dates: start: 20080521, end: 20080714
  3. STEROIDS [Concomitant]
     Indication: CROHN'S DISEASE
  4. PREDNISOLONE [Concomitant]
     Indication: CROHN'S DISEASE
     Route: 048
  5. AZATHIOPRINE [Concomitant]
     Indication: STEROID THERAPY
     Route: 048
  6. AZATHIOPRINE [Concomitant]
     Indication: DRUG DEPENDENCE
  7. MESALAMINE [Concomitant]
     Indication: CROHN'S DISEASE
     Route: 048
  8. CITALOPRAM HYDROBROMIDE [Concomitant]
     Indication: DEPRESSION
     Route: 048
  9. TRAMADOL HCL [Concomitant]
     Indication: CROHN'S DISEASE
     Route: 048

REACTIONS (8)
  - ALOPECIA [None]
  - DIZZINESS [None]
  - DYSPNOEA [None]
  - EPISTAXIS [None]
  - FATIGUE [None]
  - NAUSEA [None]
  - OEDEMA PERIPHERAL [None]
  - WHEEZING [None]
